FAERS Safety Report 6423663-8 (Version None)
Quarter: 2009Q4

REPORT INFORMATION
  Report Type: 
  Country: None (occurrence: None)
  Receive Date: 20091028
  Receipt Date: 20091019
  Transmission Date: 20100525
  Serious: Yes (Death)
  Sender: FDA-Public Use
  Company Number: 410053

PATIENT
  Age: 52 Year
  Sex: Female

DRUGS (10)
  1. EPIRUBICIN [Suspect]
     Indication: BREAST CANCER
     Dosage: 4 CYCLES
  2. (CHEMOTHERAPEUTICS NOS) [Suspect]
     Indication: BREAST CANCER
     Dates: start: 20080522
  3. CLOZARIL [Suspect]
     Indication: SCHIZOPHRENIA
     Dosage: ORAL
     Route: 048
     Dates: start: 20030909, end: 20060828
  4. CYCLOPHOSPHAMIDE [Suspect]
     Indication: BREAST CANCER
     Dosage: 4 CYCLES
  5. DOCETAXEL [Suspect]
     Indication: BREAST CANCER
     Dosage: 4 CYCLES
  6. (AMITRIPTYLINE) [Concomitant]
  7. ASACOL [Concomitant]
  8. CLONAZEPAM [Concomitant]
  9. ESCITALOPRAM [Concomitant]
  10. EZETIMIBE [Concomitant]

REACTIONS (8)
  - BREAST CANCER FEMALE [None]
  - CIRCULATORY COLLAPSE [None]
  - DIABETES MELLITUS [None]
  - HYPOGLYCAEMIA [None]
  - LYMPHOCYTE COUNT DECREASED [None]
  - PNEUMONIA [None]
  - TREATMENT NONCOMPLIANCE [None]
  - WHITE BLOOD CELL COUNT DECREASED [None]
